FAERS Safety Report 17066769 (Version 1)
Quarter: 2019Q4

REPORT INFORMATION
  Report Type: Spontaneous
  Country: BR (occurrence: BR)
  Receive Date: 20191122
  Receipt Date: 20191122
  Transmission Date: 20200122
  Serious: Yes (Life-Threatening, Hospitalization, Other)
  Sender: FDA-Public Use
  Company Number: BR-ASTRAZENECA-2019SF66484

PATIENT
  Age: 34500 Day
  Sex: Female

DRUGS (1)
  1. SEROQUEL [Suspect]
     Active Substance: QUETIAPINE FUMARATE
     Route: 048
     Dates: start: 20190627

REACTIONS (6)
  - Agitation [Not Recovered/Not Resolved]
  - Respiratory disorder [Not Recovered/Not Resolved]
  - Oxygen saturation decreased [Not Recovered/Not Resolved]
  - Cyanosis [Not Recovered/Not Resolved]
  - Laryngeal discomfort [Not Recovered/Not Resolved]
  - Laryngeal oedema [Not Recovered/Not Resolved]

NARRATIVE: CASE EVENT DATE: 20190628
